FAERS Safety Report 19910021 (Version 2)
Quarter: 2021Q4

REPORT INFORMATION
  Report Type: Report from Study
  Country: JP (occurrence: JP)
  Receive Date: 20211003
  Receipt Date: 20211018
  Transmission Date: 20220303
  Serious: No
  Sender: FDA-Public Use
  Company Number: NVSJ2021JP014435

PATIENT
  Age: 73 Year
  Sex: Male
  Weight: 58.3 kg

DRUGS (5)
  1. ZYKADIA [Suspect]
     Active Substance: CERITINIB
     Indication: Cholangiocarcinoma
     Dosage: 450 MG, QD
     Route: 048
     Dates: start: 20210406, end: 20210420
  2. OXYCONTIN [Concomitant]
     Active Substance: OXYCODONE HYDROCHLORIDE
     Indication: Tumour pain
     Dosage: 20 MG, BID
     Route: 048
     Dates: start: 20210331, end: 20210421
  3. LOXOPROFEN [Concomitant]
     Active Substance: LOXOPROFEN
     Indication: Tumour pain
     Dosage: 60 MG, BID
     Route: 048
     Dates: start: 20210420, end: 20210421
  4. NALDEMEDINE TOSYLATE [Concomitant]
     Active Substance: NALDEMEDINE TOSYLATE
     Indication: Tumour pain
     Dosage: 0.2 MG, QD
     Route: 048
     Dates: start: 20210309, end: 20210421
  5. DOMPERIDONE [Concomitant]
     Active Substance: DOMPERIDONE
     Indication: Prophylaxis of nausea and vomiting
     Dosage: 10 MG, TID
     Route: 048
     Dates: start: 20210316, end: 20210421

REACTIONS (2)
  - Blood creatinine increased [Not Recovered/Not Resolved]
  - White blood cell count decreased [Recovered/Resolved]

NARRATIVE: CASE EVENT DATE: 20210420
